FAERS Safety Report 9613053 (Version 2)
Quarter: 2013Q4

REPORT INFORMATION
  Report Type: Spontaneous
  Country: US (occurrence: US)
  Receive Date: 20131010
  Receipt Date: 20131018
  Transmission Date: 20140711
  Serious: No
  Sender: FDA-Public Use
  Company Number: US-009507513-1310USA001417

PATIENT
  Age: 65 Year
  Sex: Female

DRUGS (3)
  1. JANUMET XR [Suspect]
     Indication: DIABETES MELLITUS
     Dosage: 100/1000 MG ONCE DAILY
     Route: 048
     Dates: start: 201301
  2. LANTUS [Concomitant]
  3. ADVAIR [Concomitant]

REACTIONS (2)
  - Weight increased [Unknown]
  - Weight loss poor [Unknown]
